FAERS Safety Report 10368198 (Version 1)
Quarter: 2014Q3

REPORT INFORMATION
  Report Type: Other
  Country: US (occurrence: US)
  Receive Date: 20140807
  Receipt Date: 20140807
  Transmission Date: 20150326
  Serious: Yes (Hospitalization, Other)
  Sender: FDA-Public Use
  Company Number: US-PURDUE-USA-2014-0116113

PATIENT
  Sex: Male

DRUGS (4)
  1. OXYCODONE HYDROCHLORIDE (SIMILAR TO NDA 22-272) [Suspect]
     Active Substance: OXYCODONE HYDROCHLORIDE
     Indication: DRUG ABUSE
  2. VICODIN [Suspect]
     Active Substance: ACETAMINOPHEN\HYDROCODONE BITARTRATE
     Indication: DRUG ABUSE
  3. OXYCODONE HYDROCHLORIDE (SIMILAR TO NDA 22-272) [Suspect]
     Active Substance: OXYCODONE HYDROCHLORIDE
     Indication: BACK PAIN
  4. HEROIN [Suspect]
     Active Substance: DIACETYLMORPHINE
     Indication: DRUG ABUSE

REACTIONS (11)
  - Self injurious behaviour [Recovered/Resolved]
  - Hallucination, auditory [Recovering/Resolving]
  - Hepatitis C [Unknown]
  - Paranoia [Recovered/Resolved]
  - Therapeutic response changed [Unknown]
  - Intentional product misuse [Recovered/Resolved]
  - Substance abuse [Recovered/Resolved]
  - Depressive symptom [Recovered/Resolved]
  - Drug dependence [Recovered/Resolved]
  - Drug withdrawal syndrome [Recovered/Resolved]
  - Suicidal ideation [Recovered/Resolved]
